FAERS Safety Report 23943931 (Version 1)
Quarter: 2024Q2

REPORT INFORMATION
  Report Type: Report from Study
  Country: CN (occurrence: CN)
  Receive Date: 20240606
  Receipt Date: 20240606
  Transmission Date: 20240716
  Serious: Yes (Other)
  Sender: FDA-Public Use
  Company Number: CN-JNJFOC-20240577416

PATIENT

DRUGS (1)
  1. BEDAQUILINE [Suspect]
     Active Substance: BEDAQUILINE
     Indication: Tuberculosis
     Route: 048

REACTIONS (10)
  - Electrocardiogram QT prolonged [Unknown]
  - Hepatotoxicity [Unknown]
  - Neuropathy peripheral [Unknown]
  - Tuberculosis [Unknown]
  - Hypokalaemia [Unknown]
  - Aspartate aminotransferase increased [Unknown]
  - Vomiting [Unknown]
  - Anaemia [Unknown]
  - Intentional product use issue [Unknown]
  - Off label use [Unknown]
